FAERS Safety Report 8509220-8 (Version None)
Quarter: 2012Q3

REPORT INFORMATION
  Report Type: 
  Country: None (occurrence: None)
  Receive Date: 20120703
  Receipt Date: 20120618
  Transmission Date: 20120928
  Serious: Yes (Other)
  Sender: FDA-Public Use
  Company Number: 1322656

PATIENT
  Age: 79 Year
  Sex: Female

DRUGS (1)
  1. OXALIPLATIN [Suspect]
     Indication: COLON CANCER
     Dosage: 130 MG, CYCLIC  INTRAVENOUS DRIP
     Route: 041
     Dates: start: 20120515, end: 20120528

REACTIONS (2)
  - LARYNGOSPASM [None]
  - LARYNGEAL DYSPNOEA [None]
